FAERS Safety Report 12171645 (Version 1)
Quarter: 2016Q1

REPORT INFORMATION
  Report Type: Spontaneous
  Country: US (occurrence: None)
  Receive Date: 20160310
  Receipt Date: 20160310
  Transmission Date: 20160526
  Serious: No
  Sender: FDA-Public Use
  Company Number: None

PATIENT
  Age: 11 Year
  Sex: Male
  Weight: 32.75 kg

DRUGS (2)
  1. ZYRTEC [Concomitant]
     Active Substance: CETIRIZINE HYDROCHLORIDE
  2. GUANFACINE HCL ER 4MG SANDOZ [Suspect]
     Active Substance: GUANFACINE HYDROCHLORIDE
     Indication: ATTENTION DEFICIT/HYPERACTIVITY DISORDER
     Dosage: 1 PILL QD ORAL
     Route: 048
     Dates: start: 20160304, end: 20160305

REACTIONS (3)
  - Dizziness [None]
  - Gait disturbance [None]
  - Mental impairment [None]

NARRATIVE: CASE EVENT DATE: 20160305
